FAERS Safety Report 25223634 (Version 3)
Quarter: 2025Q3

REPORT INFORMATION
  Report Type: Report from Study
  Country: EU (occurrence: EU)
  Receive Date: 20250422
  Receipt Date: 20250819
  Transmission Date: 20251021
  Serious: No
  Sender: ABBVIE
  Company Number: EU-ABBVIE-6234947

PATIENT
  Age: 19 Year
  Sex: Male
  Weight: 52 kg

DRUGS (2)
  1. UPADACITINIB [Suspect]
     Active Substance: UPADACITINIB
     Indication: Crohn^s disease
     Route: 048
     Dates: start: 20241031, end: 20250122
  2. UPADACITINIB [Suspect]
     Active Substance: UPADACITINIB
     Indication: Crohn^s disease
     Route: 048
     Dates: start: 20250123, end: 20250131

REACTIONS (1)
  - Ileal stenosis [Recovered/Resolved]

NARRATIVE: CASE EVENT DATE: 20250131
